FAERS Safety Report 24456555 (Version 2)
Quarter: 2024Q4

REPORT INFORMATION
  Report Type: Report from Study
  Country: US (occurrence: US)
  Receive Date: 20241017
  Receipt Date: 20241018
  Transmission Date: 20250114
  Serious: No
  Sender: ROCHE
  Company Number: US-ROCHE-3510100

PATIENT
  Age: 75 Year
  Sex: Male

DRUGS (2)
  1. RITUXAN [Suspect]
     Active Substance: RITUXIMAB
     Indication: Chronic inflammatory demyelinating polyradiculoneuropathy
     Dosage: ONCE A WEEK FOR 4 WEEKS
     Route: 065
     Dates: start: 20240213
  2. RUXIENCE [Concomitant]
     Active Substance: RITUXIMAB-PVVR
     Dates: start: 20231128

REACTIONS (2)
  - Off label use [Unknown]
  - No adverse event [Unknown]

NARRATIVE: CASE EVENT DATE: 20240213
